FAERS Safety Report 5131769-9 (Version None)
Quarter: 2006Q4

REPORT INFORMATION
  Report Type: 
  Country: None (occurrence: None)
  Receive Date: 20061020
  Receipt Date: 20060314
  Transmission Date: 20070319
  Serious: Yes (Hospitalization)
  Sender: FDA-Public Use
  Company Number: CG-MERCK-0604USA02885

PATIENT
  Age: 81 Year
  Sex: Female
  Weight: 44 kg

DRUGS (1)
  1. STROMECTOL [Suspect]
     Route: 048
     Dates: start: 20060129, end: 20060129

REACTIONS (7)
  - ADVERSE EVENT [None]
  - ASTHENIA [None]
  - GAIT DISTURBANCE [None]
  - HEADACHE [None]
  - MUSCULOSKELETAL STIFFNESS [None]
  - OCULAR HYPERAEMIA [None]
  - PYREXIA [None]
